FAERS Safety Report 6989432-5 (Version None)
Quarter: 2010Q3

REPORT INFORMATION
  Report Type: 
  Country: None (occurrence: None)
  Receive Date: 20100916
  Receipt Date: 20091125
  Transmission Date: 20110219
  Serious: Yes (Other)
  Sender: FDA-Public Use
  Company Number: BR-PFIZER INC-2009302708

PATIENT
  Sex: Female
  Weight: 68 kg

DRUGS (4)
  1. LYRICA [Suspect]
     Indication: INTERVERTEBRAL DISC PROTRUSION
     Dosage: 75 MG, 1X/DAY
     Route: 048
     Dates: start: 20091124
  2. DOLAMIN FLEX [Concomitant]
     Dosage: UNK
  3. PREMARIN [Concomitant]
     Dosage: 1X/DAY
  4. NIMESULIDE [Concomitant]

REACTIONS (6)
  - BRADYPHRENIA [None]
  - GAIT DISTURBANCE [None]
  - HYPERHIDROSIS [None]
  - IMMOBILE [None]
  - PAIN [None]
  - SLUGGISHNESS [None]
